FAERS Safety Report 10544287 (Version 1)
Quarter: 2014Q4

REPORT INFORMATION
  Report Type: Spontaneous
  Country: DE (occurrence: DE)
  Receive Date: 20141027
  Receipt Date: 20141027
  Transmission Date: 20150529
  Serious: Yes (Congenital Anomaly)
  Sender: FDA-Public Use
  Company Number: GXKR2014DE003945

PATIENT

DRUGS (3)
  1. VOMEX A [Concomitant]
     Active Substance: DIMENHYDRINATE
     Indication: HYPEREMESIS GRAVIDARUM
     Dosage: MATERNAL DOSE (6. - 12. GESTATIONAL WEEK): AS NEEDED, LESS THAN 20 DFS IN TOTAL
     Route: 064
  2. CLOMIPRAMINE [Suspect]
     Active Substance: CLOMIPRAMINE
     Indication: ANXIETY DISORDER
     Dosage: MATERNAL DOSE (0. - 4. GESTATIONAL WEEK): 10 [MG/D]
     Route: 064
  3. GAVISCON [Concomitant]
     Active Substance: ALUMINUM HYDROXIDE\MAGNESIUM CARBONATE
     Indication: DYSPEPSIA
     Dosage: MATERNAL DOSE (1ST AND 2ND TRIMESTER): UNKNOWN
     Route: 064

REACTIONS (1)
  - Polydactyly [Unknown]

NARRATIVE: CASE EVENT DATE: 20080214
